FAERS Safety Report 4377241-5 (Version None)
Quarter: 2004Q2

REPORT INFORMATION
  Report Type: 
  Country: None (occurrence: None)
  Receive Date: 20040609
  Receipt Date: 20040316
  Transmission Date: 20050107
  Serious: No
  Sender: FDA-Public Use
  Company Number: 2004205361US

PATIENT
  Age: 44 Year
  Sex: Female

DRUGS (3)
  1. BEXTRA [Suspect]
     Indication: LIMB INJURY
     Dosage: 20 MG, QD
     Dates: start: 20040301, end: 20040310
  2. PRIMROSE [Concomitant]
  3. MULTIVITAMINS (ERGOCALCIFEROL, RETINOL, PANTHENOL) [Concomitant]

REACTIONS (1)
  - AFFECTIVE DISORDER [None]
